FAERS Safety Report 8866959 (Version 1)
Quarter: 2012Q4

REPORT INFORMATION
  Report Type: 
  Country: US (occurrence: US)
  Receive Date: 20121025
  Receipt Date: 20121025
  Transmission Date: 20130627
  Serious: No
  Sender: FDA-Public Use
  Company Number: US-AMGEN-USASP2012014005

PATIENT
  Age: 44 Year
  Sex: Female
  Weight: 88.89 kg

DRUGS (5)
  1. ENBREL [Suspect]
     Indication: PRODUCT USED FOR UNKNOWN INDICATION
     Dosage: 25 mg, 2 times/wk
     Route: 058
  2. SYNTHROID [Concomitant]
     Dosage: 75 mug, UNK
  3. OMEPRAZOLE [Concomitant]
     Dosage: 20 mg, UNK
  4. MULTIVITAMIN                       /00097801/ [Concomitant]
  5. TREXALL [Concomitant]
     Dosage: 15 mg, UNK

REACTIONS (2)
  - Injection site swelling [Unknown]
  - Injection site pruritus [Unknown]
